FAERS Safety Report 22589956 (Version 1)
Quarter: 2023Q2

REPORT INFORMATION
  Report Type: Spontaneous
  Country: US (occurrence: None)
  Receive Date: 20230609
  Receipt Date: 20230609
  Transmission Date: 20230721
  Serious: Yes (Disabling)
  Sender: FDA-Public Use
  Company Number: None

PATIENT
  Age: 72 Year
  Sex: Female
  Weight: 72.9 kg

DRUGS (1)
  1. IBANDRONATE SODIUM [Suspect]
     Active Substance: IBANDRONATE SODIUM
     Indication: Osteoporosis

REACTIONS (15)
  - Pain in jaw [None]
  - Tooth abscess [None]
  - Endodontic procedure [None]
  - Tooth extraction [None]
  - Osteonecrosis [None]
  - Infection [None]
  - Sinus disorder [None]
  - Secretion discharge [None]
  - Inner ear disorder [None]
  - Dizziness [None]
  - Tinnitus [None]
  - Pain in extremity [None]
  - Hip fracture [None]
  - Arthralgia [None]
  - Pain in extremity [None]

NARRATIVE: CASE EVENT DATE: 20210715
